FAERS Safety Report 5135321-0 (Version None)
Quarter: 2006Q4

REPORT INFORMATION
  Report Type: 
  Country: None (occurrence: None)
  Receive Date: 20061026
  Receipt Date: 20061013
  Transmission Date: 20070319
  Serious: Yes (Hospitalization, Other)
  Sender: FDA-Public Use
  Company Number: ZA-AVENTIS-200620816GDDC

PATIENT
  Sex: Female

DRUGS (2)
  1. LANTUS [Suspect]
     Indication: DIABETES MELLITUS
     Dosage: DOSE: UNK
     Route: 058
     Dates: start: 20030101
  2. CIPROBAY                           /00697202/ [Concomitant]
     Indication: OSTEOMYELITIS
     Route: 042

REACTIONS (2)
  - BLOOD GLUCOSE INCREASED [None]
  - OSTEOMYELITIS [None]
